FAERS Safety Report 7753236-6 (Version None)
Quarter: 2011Q3

REPORT INFORMATION
  Report Type: 
  Country: None (occurrence: None)
  Receive Date: 20110915
  Receipt Date: 20110913
  Transmission Date: 20111222
  Serious: Yes (Death, Hospitalization)
  Sender: FDA-Public Use
  Company Number: VE-PFIZER INC-2011205565

PATIENT
  Age: 80 Year
  Sex: Male

DRUGS (4)
  1. LIPITOR [Suspect]
     Indication: HYPERCHOLESTEROLAEMIA
     Dosage: 10 MG, ONCE DAILY
     Route: 048
     Dates: end: 20110725
  2. AMIODARONE HCL [Concomitant]
     Indication: ARRHYTHMIA
     Dosage: UNK
     Route: 048
     Dates: start: 19910101, end: 20110101
  3. PLAVIX [Concomitant]
     Indication: HYPERTENSION
     Dosage: UNK
     Route: 048
     Dates: start: 19910101, end: 20110101
  4. DIOVAN [Concomitant]
     Indication: ARRHYTHMIA
     Dosage: UNK
     Route: 048
     Dates: start: 19910101, end: 20110101

REACTIONS (2)
  - RESPIRATORY ARREST [None]
  - RENAL FAILURE CHRONIC [None]
